FAERS Safety Report 9050957 (Version 1)
Quarter: 2013Q1

REPORT INFORMATION
  Report Type: Spontaneous
  Country: DE (occurrence: DE)
  Receive Date: 20130205
  Receipt Date: 20130205
  Transmission Date: 20140127
  Serious: Yes (Other)
  Sender: FDA-Public Use
  Company Number: DE-PFIZER INC-2013035700

PATIENT
  Sex: Female
  Weight: 73 kg

DRUGS (1)
  1. RAMIPRIL [Suspect]
     Indication: HYPERTENSION
     Dosage: 2.5 MG, 1X/DAY
     Route: 048
     Dates: start: 20111208, end: 201208

REACTIONS (3)
  - Depressed mood [Recovered/Resolved]
  - Restlessness [Recovered/Resolved]
  - Balance disorder [Recovered/Resolved]
